FAERS Safety Report 6577047-2 (Version None)
Quarter: 2010Q1

REPORT INFORMATION
  Report Type: 
  Country: None (occurrence: None)
  Receive Date: 20100210
  Receipt Date: 20100204
  Transmission Date: 20100710
  Serious: Yes (Hospitalization, Other)
  Sender: FDA-Public Use
  Company Number: FR-BRISTOL-MYERS SQUIBB COMPANY-14965263

PATIENT
  Age: 38 Year
  Sex: Male

DRUGS (4)
  1. REYATAZ [Suspect]
     Indication: HIV INFECTION
     Dosage: STOPPED FROM OCT'07-NOV'07
     Dates: start: 20060101
  2. NORVIR [Suspect]
     Indication: HIV INFECTION
     Dosage: STOPPED FROM OCT'07-NOV'07
     Dates: start: 20060101
  3. KIVEXA [Suspect]
     Indication: HIV INFECTION
     Dosage: 1DF-600/300MG , STOPPED FROM OCT'07-NOV'07
     Dates: start: 20060101
  4. INVIRASE [Suspect]
     Indication: HIV INFECTION
     Dates: start: 20080101

REACTIONS (4)
  - CERVICAL ROOT PAIN [None]
  - INTERVERTEBRAL DISC PROTRUSION [None]
  - NEUROPATHY PERIPHERAL [None]
  - SCIATICA [None]
